FAERS Safety Report 8391015-X (Version None)
Quarter: 2012Q2

REPORT INFORMATION
  Report Type: 
  Country: None (occurrence: None)
  Receive Date: 20120529
  Receipt Date: 20120522
  Transmission Date: 20120825
  Serious: Yes (Hospitalization)
  Sender: FDA-Public Use
  Company Number: US-TEVA-339639USA

PATIENT
  Sex: Female
  Weight: 79 kg

DRUGS (11)
  1. METFORMIN HCL [Concomitant]
     Indication: DIABETES MELLITUS
     Dosage: 2000 MILLIGRAM;
     Dates: start: 20120325
  2. IRINOTECAN HCL [Suspect]
     Dosage: DAY 1 AND DAY 15 OF 28 DAY CYCLE (150 MG/M2)
     Route: 042
     Dates: start: 20120322
  3. MACROGOL 3350 [Concomitant]
     Indication: CONSTIPATION
     Dosage: AS REQUIRED
     Dates: start: 20120322
  4. LEUCOVORIN CALCIUM [Suspect]
     Indication: NEOPLASM
  5. FLUOROURACIL [Suspect]
     Indication: NEOPLASM
     Dosage: DAYS 1-3 AND 15-17 OF 28 DAY CYCLE 2400 MG/M2
     Route: 042
     Dates: start: 20120322
  6. ABT-888 (VELIPARIB) [Suspect]
     Dosage: GRCLE 1 DAYS 15-19, THEN ON DAYS 1-5 AND 15-19 OF OTHER 28 DAY CYCLE (2 IN 1D)
     Route: 048
  7. PROCHLORPERAZINE EDISYLATE [Concomitant]
     Indication: PROPHYLAXIS OF NAUSEA AND VOMITING
     Dosage: AS REQUIRED
     Dates: start: 20120322
  8. OMEPRAZOLE [Concomitant]
     Indication: GASTROOESOPHAGEAL REFLUX DISEASE
     Dosage: AS REQUIRED
     Dates: start: 20120329
  9. LORAZEPAM [Concomitant]
     Indication: ANXIETY
  10. ONDANSETRON [Concomitant]
     Indication: PROPHYLAXIS OF NAUSEA AND VOMITING
     Dosage: AS REQUIRED-PRECHEOM
     Dates: start: 20120322
  11. COLECALCIFEROL [Concomitant]
     Indication: SUPPLEMENTATION THERAPY

REACTIONS (1)
  - CLOSTRIDIUM DIFFICILE COLITIS [None]
